FAERS Safety Report 4498613-4 (Version None)
Quarter: 2004Q4

REPORT INFORMATION
  Report Type: 
  Country: None (occurrence: None)
  Receive Date: 20041111
  Receipt Date: 20041020
  Transmission Date: 20050328
  Serious: Yes (Hospitalization)
  Sender: FDA-Public Use
  Company Number: FR-JNJFOC-20041006541

PATIENT
  Age: 24 Year
  Sex: Male

DRUGS (8)
  1. REMICADE [Suspect]
     Dosage: 2ND INFUSION
     Route: 042
  2. REMICADE [Suspect]
     Indication: DRUG USE FOR UNKNOWN INDICATION
     Dosage: 1ST INFUSION
     Route: 042
  3. TERCIAN [Suspect]
     Indication: DRUG USE FOR UNKNOWN INDICATION
     Route: 049
  4. XANAX [Suspect]
     Indication: DRUG USE FOR UNKNOWN INDICATION
     Route: 049
  5. STABLON [Suspect]
     Indication: DRUG USE FOR UNKNOWN INDICATION
  6. IBUPROFEN [Suspect]
  7. IBUPROFEN [Suspect]
     Indication: MYALGIA
  8. IMUREL [Concomitant]
     Route: 049

REACTIONS (3)
  - DERMATITIS BULLOUS [None]
  - MYALGIA [None]
  - NECK PAIN [None]
